FAERS Safety Report 25129871 (Version 1)
Quarter: 2025Q1

REPORT INFORMATION
  Report Type: Spontaneous
  Country: JP (occurrence: JP)
  Receive Date: 20250327
  Receipt Date: 20250327
  Transmission Date: 20250408
  Serious: Yes (Hospitalization)
  Sender: MERCK SHARP & DOHME LLC
  Company Number: JP-009507513-2267890

PATIENT
  Age: 78 Year
  Sex: Male

DRUGS (3)
  1. KEYTRUDA [Suspect]
     Active Substance: PEMBROLIZUMAB
     Indication: Oesophageal carcinoma recurrent
     Dosage: 200 MG, EVERY 3 WEEKS. (16 COURSES)
     Route: 041
     Dates: start: 202404, end: 202503
  2. CISPLATIN [Concomitant]
     Active Substance: CISPLATIN
     Indication: Oesophageal carcinoma
     Dosage: 80 MG/M2, EVERY 3 WEEKS.
     Route: 041
     Dates: start: 202404, end: 202408
  3. FLUOROURACIL [Concomitant]
     Active Substance: FLUOROURACIL
     Indication: Oesophageal carcinoma
     Route: 041
     Dates: start: 202404, end: 202503

REACTIONS (3)
  - Fanconi syndrome [Unknown]
  - Blood phosphorus increased [Not Recovered/Not Resolved]
  - Blood chloride abnormal [Unknown]

NARRATIVE: CASE EVENT DATE: 20250301
